FAERS Safety Report 22541595 (Version 1)
Quarter: 2023Q2

REPORT INFORMATION
  Report Type: Spontaneous
  Country: US (occurrence: None)
  Receive Date: 20230608
  Receipt Date: 20230608
  Transmission Date: 20230722
  Serious: Yes (Life-Threatening, Hospitalization)
  Sender: FDA-Public Use
  Company Number: None

PATIENT
  Age: 53 Year
  Sex: Female
  Weight: 70 kg

DRUGS (2)
  1. PIQRAY [Suspect]
     Active Substance: ALPELISIB
     Indication: Breast cancer metastatic
     Dosage: FREQUENCY : DAILY;?
     Route: 048
     Dates: start: 20230515, end: 20230601
  2. FASLODEX [Suspect]
     Active Substance: FULVESTRANT
     Dates: start: 20230515

REACTIONS (4)
  - Hypotension [None]
  - Anaphylactic reaction [None]
  - Hypersensitivity [None]
  - Pain in extremity [None]

NARRATIVE: CASE EVENT DATE: 20230601
